FAERS Safety Report 5213638-9 (Version None)
Quarter: 2007Q1

REPORT INFORMATION
  Report Type: 
  Country: None (occurrence: None)
  Receive Date: 20070119
  Receipt Date: 20070112
  Transmission Date: 20070707
  Serious: Yes (Other)
  Sender: FDA-Public Use
  Company Number: GB-PFIZER INC-2007004461

PATIENT
  Sex: Female

DRUGS (1)
  1. LUSTRAL [Suspect]
     Indication: DEPRESSION

REACTIONS (4)
  - BALANCE DISORDER [None]
  - DYSSTASIA [None]
  - HEADACHE [None]
  - HEMIPLEGIA [None]
